FAERS Safety Report 21209675 (Version 1)
Quarter: 2022Q3

REPORT INFORMATION
  Report Type: Report from Study
  Country: IT (occurrence: IT)
  Receive Date: 20220813
  Receipt Date: 20220813
  Transmission Date: 20221027
  Serious: Yes (Death)
  Sender: FDA-Public Use
  Company Number: IT-ABBVIE-22K-083-4502006-00

PATIENT
  Age: 76 Year
  Sex: Female

DRUGS (2)
  1. CARBIDOPA\LEVODOPA [Suspect]
     Active Substance: CARBIDOPA\LEVODOPA
     Indication: Parkinson^s disease
     Dosage: TOTAL DAILY DOSE (MG): 1106; PUMP SETTING: MD: 3,5+3 CR: 2,9, ED: 2,7
     Route: 050
     Dates: start: 20170612, end: 20220804
  2. CARBIDOPA\LEVODOPA [Suspect]
     Active Substance: CARBIDOPA\LEVODOPA

REACTIONS (2)
  - General physical health deterioration [Fatal]
  - Death [Fatal]

NARRATIVE: CASE EVENT DATE: 20220804
